FAERS Safety Report 8504865-3 (Version None)
Quarter: 2012Q2

REPORT INFORMATION
  Report Type: 
  Country: None (occurrence: None)
  Receive Date: 20120405
  Receipt Date: 20100914
  Transmission Date: 20120825
  Serious: Yes (Disabling)
  Sender: FDA-Public Use
  Company Number: PHHY2010US56352

PATIENT
  Age: 64 Year
  Sex: Female
  Weight: 81.2 kg

DRUGS (9)
  1. OMEGA-3 FATTY ACIDS [Concomitant]
  2. ATENOLOL [Concomitant]
  3. MULTIVITAMINS (ASCORBIC ACID, ERGOCALCIFEROL, FOLIC ACID, NICOTINAMIDE [Concomitant]
  4. VITAMIN D [Concomitant]
  5. CALCIUM (CALCIUM, COLECALCIFEROL) [Concomitant]
  6. PRILOSEC [Concomitant]
  7. LEVOTHYROXINE SODIUM [Concomitant]
  8. OMEPRAZOLE [Concomitant]
  9. RECLAST [Suspect]
     Indication: OSTEOPOROSIS
     Dosage: 4 MG,, INTRAVENOUS
     Route: 042
     Dates: start: 20100617, end: 20100617

REACTIONS (10)
  - PAIN IN EXTREMITY [None]
  - CHILLS [None]
  - HEADACHE [None]
  - BONE PAIN [None]
  - MYALGIA [None]
  - GAIT DISTURBANCE [None]
  - INFLUENZA LIKE ILLNESS [None]
  - MALAISE [None]
  - QUALITY OF LIFE DECREASED [None]
  - PYREXIA [None]
